FAERS Safety Report 10866403 (Version 1)
Quarter: 2015Q1

REPORT INFORMATION
  Report Type: Spontaneous
  Country: US (occurrence: None)
  Receive Date: 20150219
  Receipt Date: 20150219
  Transmission Date: 20150721
  Serious: Yes (Disabling)
  Sender: FDA-Public Use
  Company Number: None

PATIENT
  Age: 38 Year
  Sex: Female
  Weight: 61.24 kg

DRUGS (7)
  1. CIPRO [Suspect]
     Active Substance: CIPROFLOXACIN HYDROCHLORIDE
     Indication: APPENDICITIS
     Dates: start: 20141219, end: 20141220
  2. ZYRTEC [Concomitant]
     Active Substance: CETIRIZINE HYDROCHLORIDE
  3. AMOXICILLIN. [Concomitant]
     Active Substance: AMOXICILLIN
  4. TYLENOL [Concomitant]
     Active Substance: ACETAMINOPHEN
  5. BIRTH CONTROL [Concomitant]
     Active Substance: UNSPECIFIED INGREDIENT
  6. AMBIEN [Concomitant]
     Active Substance: ZOLPIDEM TARTRATE
  7. MOM [Concomitant]
     Active Substance: MAGNESIUM HYDROXIDE

REACTIONS (15)
  - Disturbance in attention [None]
  - Pruritus [None]
  - Rash generalised [None]
  - Gait disturbance [None]
  - Myalgia [None]
  - Rash erythematous [None]
  - Feeling abnormal [None]
  - Urticaria [None]
  - Pain [None]
  - Pallor [None]
  - Joint swelling [None]
  - Arthralgia [None]
  - Systemic lupus erythematosus rash [None]
  - Drug hypersensitivity [None]
  - Serum sickness [None]

NARRATIVE: CASE EVENT DATE: 20141219
